FAERS Safety Report 23422972 (Version 1)
Quarter: 2024Q1

REPORT INFORMATION
  Report Type: Spontaneous
  Country: US (occurrence: None)
  Receive Date: 20240119
  Receipt Date: 20240119
  Transmission Date: 20240410
  Serious: No
  Sender: FDA-Public Use
  Company Number: None

PATIENT
  Age: 97 Year
  Sex: Female

DRUGS (2)
  1. AMBRISENTAN [Suspect]
     Active Substance: AMBRISENTAN
     Indication: Pulmonary arterial hypertension
     Dosage: 10MG  DAILY ORAL?
     Route: 048
     Dates: start: 201908
  2. TADALAFIL [Concomitant]
     Active Substance: TADALAFIL

REACTIONS (1)
  - Death [None]

NARRATIVE: CASE EVENT DATE: 20240105
